FAERS Safety Report 8313289-3 (Version None)
Quarter: 2012Q2

REPORT INFORMATION
  Report Type: 
  Country: None (occurrence: None)
  Receive Date: 20120425
  Receipt Date: 20120425
  Transmission Date: 20120825
  Serious: Yes (Hospitalization)
  Sender: FDA-Public Use
  Company Number: None

PATIENT
  Age: 18 Year
  Sex: Male
  Weight: 97.0698 kg

DRUGS (4)
  1. PAXIL [Suspect]
     Indication: OBSESSIVE-COMPULSIVE DISORDER
     Dosage: 1 20MG 1 DAILY
     Dates: start: 20120222
  2. PAXIL [Suspect]
     Indication: DEPRESSION
     Dosage: 1 20MG 1 DAILY
     Dates: start: 20120222
  3. PAXIL [Suspect]
     Indication: PANIC DISORDER
     Dosage: 1 20MG 1 DAILY
     Dates: start: 20120222
  4. PAXIL [Suspect]
     Indication: ANXIETY
     Dosage: 1 20MG 1 DAILY
     Dates: start: 20120222

REACTIONS (5)
  - ERYTHEMA [None]
  - RASH [None]
  - BURNING SENSATION [None]
  - DYSPNOEA [None]
  - CHEST PAIN [None]
